FAERS Safety Report 8382046-4 (Version None)
Quarter: 2012Q2

REPORT INFORMATION
  Report Type: 
  Country: None (occurrence: None)
  Receive Date: 20120522
  Receipt Date: 20120511
  Transmission Date: 20120825
  Serious: Yes (Hospitalization, Other)
  Sender: FDA-Public Use
  Company Number: 2012AP001429

PATIENT
  Age: 82 Year
  Sex: Male

DRUGS (8)
  1. ACETAMINOPHEN W/ CODEINE [Concomitant]
  2. ALENDRONATE SODIUM [Suspect]
     Indication: OSTEOPOROSIS
     Dosage: 70 MG;QW;PO
     Route: 048
     Dates: end: 20120430
  3. BENDROFLUMETHIAZIDE (BENDROFLUMETHIAZIDE) [Concomitant]
  4. AMILORIDE (AMILORIDE) [Concomitant]
  5. AMLODIPINE [Concomitant]
  6. CALCEOS (LEKOVIT CA) [Concomitant]
  7. DIGOXIN [Concomitant]
  8. WARFARIN SODIUM [Concomitant]

REACTIONS (2)
  - DUODENAL ULCER PERFORATION [None]
  - PNEUMOPERITONEUM [None]
